FAERS Safety Report 13051867 (Version 1)
Quarter: 2016Q4

REPORT INFORMATION
  Report Type: Report from Study
  Country: US (occurrence: US)
  Receive Date: 20161221
  Receipt Date: 20161221
  Transmission Date: 20170207
  Serious: Yes (Hospitalization)
  Sender: FDA-Public Use
  Company Number: PHHO2014US019177

PATIENT
  Age: 49 Year
  Sex: Male
  Weight: 89.4 kg

DRUGS (3)
  1. PALBOCICLIB [Concomitant]
     Active Substance: PALBOCICLIB
     Indication: NEUROENDOCRINE TUMOUR
     Dosage: 21 DAYS ON/7 DAYS OFF
     Route: 048
     Dates: start: 20140709
  2. GSK1120212 [Suspect]
     Active Substance: TRAMETINIB
     Indication: NEUROENDOCRINE TUMOUR
     Dosage: 1.5 MG, QD
     Route: 048
     Dates: start: 20140709
  3. ACETYLSALICYLIC ACID [Suspect]
     Active Substance: ASPIRIN
     Indication: ANEURYSM
     Dosage: 81 MG, QD
     Route: 048
     Dates: start: 20140617, end: 20140909

REACTIONS (1)
  - Epistaxis [Recovered/Resolved]

NARRATIVE: CASE EVENT DATE: 20140909
